FAERS Safety Report 4631464-6 (Version None)
Quarter: 2005Q2

REPORT INFORMATION
  Report Type: 
  Country: None (occurrence: None)
  Receive Date: 20050407
  Receipt Date: 20050330
  Transmission Date: 20051028
  Serious: Yes (Hospitalization)
  Sender: FDA-Public Use
  Company Number: HQWYE647204APR05

PATIENT
  Age: 80 Year
  Sex: Male

DRUGS (9)
  1. EFFEXOR [Suspect]
     Indication: DEPRESSION
     Dosage: 75 MG 1X PER 1 DAY
  2. METHADONE HYDROCHLORIDE (METHADONE HYDROCHLORIDE) [Concomitant]
  3. OMEPRAZOLE [Concomitant]
  4. ASPIRIN [Concomitant]
  5. CENTRUM (MULTIVITAMIN/MULTIMINERAL) [Concomitant]
  6. ACETAMINOPHEN [Concomitant]
  7. ALENDRONATE SODIUM [Concomitant]
  8. COLOXYL WITH SENNA (DOCUSATE SODIUM/SENNOSIDE A+B) [Concomitant]
  9. SORBITOL (SORBITOL) [Concomitant]

REACTIONS (1)
  - JOINT STIFFNESS [None]
